FAERS Safety Report 4449615-5 (Version None)
Quarter: 2004Q3

REPORT INFORMATION
  Report Type: 
  Country: None (occurrence: None)
  Receive Date: 20040913
  Receipt Date: 20040830
  Transmission Date: 20050211
  Serious: Yes (Hospitalization)
  Sender: FDA-Public Use
  Company Number: 2004IM000827

PATIENT
  Age: 74 Year
  Sex: Male

DRUGS (1)
  1. ACTIMMUNE [Suspect]
     Dosage: 200 UG; TIW; SUBCUTANEOUS
     Route: 058
     Dates: start: 20021109

REACTIONS (1)
  - INFECTION [None]
